FAERS Safety Report 13569908 (Version 3)
Quarter: 2023Q1

REPORT INFORMATION
  Report Type: Report from Study
  Country: US (occurrence: US)
  Receive Date: 20170522
  Receipt Date: 20230304
  Transmission Date: 20230418
  Serious: Yes (Other)
  Sender: FDA-Public Use
  Company Number: US-BAXALTA-2017BLT004484

PATIENT
  Sex: Male
  Weight: 90 kg

DRUGS (3)
  1. HUMAN IMMUNOGLOBULIN G [Suspect]
     Active Substance: HUMAN IMMUNOGLOBULIN G
     Indication: Primary immunodeficiency syndrome
     Dosage: 10 GRAM, 1/WEEK
     Route: 065
  2. HUMAN IMMUNOGLOBULIN G [Suspect]
     Active Substance: HUMAN IMMUNOGLOBULIN G
     Indication: Immunodeficiency common variable
     Dosage: 10 GRAM, 1/WEEK
     Route: 058
     Dates: start: 20170127
  3. HUMAN IMMUNOGLOBULIN G [Suspect]
     Active Substance: HUMAN IMMUNOGLOBULIN G
     Dosage: 6 GRAM
     Route: 058
     Dates: start: 20170511

REACTIONS (8)
  - Limb mass [Not Recovered/Not Resolved]
  - Deafness [Unknown]
  - Multimorbidity [Unknown]
  - Cutis verticis gyrata [Unknown]
  - Chest discomfort [Unknown]
  - COVID-19 [Unknown]
  - Thyroid disorder [Unknown]
  - Underdose [Unknown]

NARRATIVE: CASE EVENT DATE: 20170101
